FAERS Safety Report 17920667 (Version 1)
Quarter: 2020Q2

REPORT INFORMATION
  Report Type: Spontaneous
  Country: DE (occurrence: DE)
  Receive Date: 20200621
  Receipt Date: 20200621
  Transmission Date: 20200714
  Serious: Yes (Hospitalization, Other)
  Sender: FDA-Public Use
  Company Number: NVSC2020DE171953

PATIENT
  Age: 69 Year
  Sex: Male
  Weight: 85 kg

DRUGS (5)
  1. RAMIPRIL. [Concomitant]
     Active Substance: RAMIPRIL
     Indication: PRODUCT USED FOR UNKNOWN INDICATION
     Dosage: 5 MG, Q12H (1-0-1-0)
     Route: 065
  2. METOPROLOL. [Concomitant]
     Active Substance: METOPROLOL
     Indication: PRODUCT USED FOR UNKNOWN INDICATION
     Dosage: 47.5 MG, Q12H (1-0-1-0)
     Route: 065
  3. ACETYLSALICYLIC ACID [Suspect]
     Active Substance: ASPIRIN
     Indication: PRODUCT USED FOR UNKNOWN INDICATION
     Dosage: 100 MG, QD (1-0-0-0)
     Route: 065
  4. APIDRA [Concomitant]
     Active Substance: INSULIN GLULISINE
     Indication: PRODUCT USED FOR UNKNOWN INDICATION
     Dosage: UNK (NK IE, NACH SCHEMA)
     Route: 065
  5. LANTUS [Concomitant]
     Active Substance: INSULIN GLARGINE
     Indication: PRODUCT USED FOR UNKNOWN INDICATION
     Dosage: 18 IU, QD (NK IE, 0-0-18-0)
     Route: 065

REACTIONS (7)
  - Palpitations [Unknown]
  - General physical health deterioration [Unknown]
  - Tachycardia [Unknown]
  - Dyspnoea exertional [Unknown]
  - Fatigue [Unknown]
  - Atrial fibrillation [Unknown]
  - Anaemia [Unknown]
